FAERS Safety Report 6051964-4 (Version None)
Quarter: 2009Q1

REPORT INFORMATION
  Report Type: 
  Country: None (occurrence: None)
  Receive Date: 20090126
  Receipt Date: 20090114
  Transmission Date: 20090719
  Serious: Yes (Hospitalization, Disabling, Other)
  Sender: FDA-Public Use
  Company Number: GB-AVENTIS-200910693GDDC

PATIENT
  Age: 26 Year
  Sex: Male

DRUGS (1)
  1. GLIBENCLAMIDE [Suspect]

REACTIONS (3)
  - CEREBRAL INFARCTION [None]
  - HYPOGLYCAEMIC COMA [None]
  - OVERDOSE [None]
